FAERS Safety Report 6043926-8 (Version None)
Quarter: 2009Q1

REPORT INFORMATION
  Report Type: 
  Country: None (occurrence: None)
  Receive Date: 20090114
  Receipt Date: 20080221
  Transmission Date: 20090719
  Serious: Yes (Other)
  Sender: FDA-Public Use
  Company Number: WWISSUE-153

PATIENT
  Sex: Male

DRUGS (2)
  1. CARISOPRODOL [Suspect]
     Indication: PAIN
     Dosage: ORAL
     Route: 048
  2. RANITIDINE [Concomitant]

REACTIONS (1)
  - DRUG INEFFECTIVE [None]
